FAERS Safety Report 9494442 (Version 1)
Quarter: 2013Q3

REPORT INFORMATION
  Report Type: Spontaneous
  Country: IT (occurrence: IT)
  Receive Date: 20130903
  Receipt Date: 20130903
  Transmission Date: 20140515
  Serious: Yes (Other)
  Sender: FDA-Public Use
  Company Number: PHHY2013IT093750

PATIENT
  Sex: Female

DRUGS (7)
  1. LORAZEPAM [Suspect]
     Indication: SUICIDE ATTEMPT
     Dosage: 4 MG, ONCE/SINGLE
     Route: 048
     Dates: start: 20130703, end: 20130703
  2. PROZIN//CHLORPROMAZINE HYDROCHLORIDE [Suspect]
     Indication: SUICIDE ATTEMPT
     Dosage: 40 ML, ONCE/SINGLE
     Route: 048
     Dates: start: 20130703, end: 20130703
  3. DEPAKINE CHRONO [Suspect]
     Indication: SUICIDE ATTEMPT
     Dosage: 1000 MG, ONCE/SINGLE
     Route: 048
     Dates: start: 20130703, end: 20130703
  4. DALMADORM [Suspect]
     Indication: SUICIDE ATTEMPT
     Dosage: 30 MG, ONCE/SINGLE
     Route: 048
     Dates: start: 20130703, end: 20130703
  5. SEROQUEL [Concomitant]
  6. FLUNOX [Concomitant]
  7. DIAZEPAM [Concomitant]

REACTIONS (1)
  - Sopor [Not Recovered/Not Resolved]
